FAERS Safety Report 18428785 (Version 1)
Quarter: 2020Q4

REPORT INFORMATION
  Report Type: Spontaneous
  Country: FR (occurrence: FR)
  Receive Date: 20201026
  Receipt Date: 20201026
  Transmission Date: 20210114
  Serious: Yes (Other)
  Sender: FDA-Public Use
  Company Number: FR-MYLANLABS-2020M1089706

PATIENT
  Age: 67 Year
  Sex: Female

DRUGS (2)
  1. ANDROCUR [Suspect]
     Active Substance: CYPROTERONE ACETATE
     Indication: MENOPAUSE
     Dosage: CF COMMENTAIRES
     Route: 048
     Dates: start: 2004, end: 2010
  2. OROMONE [Suspect]
     Active Substance: ESTRADIOL
     Indication: MENOPAUSE
     Dosage: CF COMMENTAIRES
     Route: 048
     Dates: start: 1999, end: 2005

REACTIONS (1)
  - Meningioma [Not Recovered/Not Resolved]

NARRATIVE: CASE EVENT DATE: 202002
